FAERS Safety Report 5010920-5 (Version None)
Quarter: 2006Q2

REPORT INFORMATION
  Report Type: 
  Country: None (occurrence: None)
  Receive Date: 20060523
  Receipt Date: 20060523
  Transmission Date: 20061013
  Serious: No
  Sender: FDA-Public Use
  Company Number: None

PATIENT
  Age: 52 Year
  Sex: Female
  Weight: 91 kg

DRUGS (1)
  1. HYDROMORPHONE [Suspect]
     Dosage: 1MG X 3 IV,  PCA
     Route: 042
     Dates: start: 20051004

REACTIONS (3)
  - CARDIO-RESPIRATORY ARREST [None]
  - LOSS OF CONSCIOUSNESS [None]
  - RESPIRATORY RATE INCREASED [None]
